FAERS Safety Report 10052218 (Version 1)
Quarter: 2014Q2

REPORT INFORMATION
  Report Type: Spontaneous
  Country: US (occurrence: US)
  Receive Date: 20140402
  Receipt Date: 20140402
  Transmission Date: 20141212
  Serious: Yes (Hospitalization)
  Sender: FDA-Public Use
  Company Number: US-BAYER-2014-049376

PATIENT
  Age: 39 Year
  Sex: Female

DRUGS (5)
  1. YASMIN [Suspect]
  2. ADVAIR [Concomitant]
  3. ALBUTEROL [Concomitant]
     Indication: ASTHMA
  4. SERETIDE [Concomitant]
     Indication: ASTHMA
  5. PROFENID [Concomitant]

REACTIONS (2)
  - Deep vein thrombosis [Recovering/Resolving]
  - Pulmonary embolism [None]
